FAERS Safety Report 7765222-0 (Version None)
Quarter: 2011Q3

REPORT INFORMATION
  Report Type: 
  Country: None (occurrence: None)
  Receive Date: 20110921
  Receipt Date: 20110912
  Transmission Date: 20111222
  Serious: Yes (Other)
  Sender: FDA-Public Use
  Company Number: US-GLAXOSMITHKLINE-A0944162A

PATIENT
  Sex: Male

DRUGS (1)
  1. AVANDIA [Suspect]
     Indication: PRODUCT USED FOR UNKNOWN INDICATION
     Route: 048
     Dates: start: 20020101

REACTIONS (11)
  - CARDIAC DISORDER [None]
  - JOINT SWELLING [None]
  - CORONARY ARTERY DISEASE [None]
  - LIVER DISORDER [None]
  - NEUROPATHY PERIPHERAL [None]
  - POLLAKIURIA [None]
  - ANAEMIA [None]
  - BACK PAIN [None]
  - JAUNDICE [None]
  - CORONARY ARTERIAL STENT INSERTION [None]
  - PRURITUS [None]
